FAERS Safety Report 9927595 (Version 3)
Quarter: 2014Q2

REPORT INFORMATION
  Report Type: Spontaneous
  Country: US (occurrence: US)
  Receive Date: 20140227
  Receipt Date: 20140428
  Transmission Date: 20141212
  Serious: Yes (Hospitalization, Other)
  Sender: FDA-Public Use
  Company Number: US-BIOGENIDEC-2014BI017468

PATIENT
  Age: 46 Year
  Sex: Male

DRUGS (26)
  1. TYSABRI [Suspect]
     Indication: MULTIPLE SCLEROSIS
     Route: 042
     Dates: start: 20120711
  2. TYSABRI [Suspect]
     Indication: MULTIPLE SCLEROSIS
     Route: 042
     Dates: end: 20131111
  3. AVONEX [Concomitant]
     Indication: MULTIPLE SCLEROSIS
     Route: 030
  4. AVONEX [Concomitant]
     Indication: MULTIPLE SCLEROSIS
     Route: 030
     Dates: start: 19980301
  5. ENOXAPARIN [Concomitant]
  6. LAMOTRIGINE [Concomitant]
     Route: 048
  7. SETRALINE [Concomitant]
     Route: 048
  8. BISACODYL [Concomitant]
     Route: 054
  9. POLYETHYLENE GLYCOL [Concomitant]
     Route: 048
  10. SENNA [Concomitant]
     Route: 048
  11. BACLOFEN [Concomitant]
  12. OMEPRAZOLE [Concomitant]
  13. OXYBUTYNIN [Concomitant]
     Route: 048
  14. MORPHINE [Concomitant]
  15. HYDROCODONE ACETAMINOPHEN [Concomitant]
     Route: 048
  16. ONDANSETRON [Concomitant]
  17. DOCUSATE SODIUM [Concomitant]
     Indication: CONSTIPATION
     Route: 048
  18. CYCLOBENZAPRINE [Concomitant]
     Route: 048
  19. DEXTROSE [Concomitant]
  20. ACETAMINOPHEN [Concomitant]
     Indication: PAIN
  21. ACETAMINOPHEN [Concomitant]
     Indication: PYREXIA
  22. SIMVASTATIN [Concomitant]
     Route: 048
  23. ALPRAZOLAM [Concomitant]
     Route: 048
  24. CHOLECALCIFEROL [Concomitant]
     Route: 048
  25. FENOFIBRATE [Concomitant]
     Route: 048
  26. ASCORBIC ACID [Concomitant]
     Route: 048

REACTIONS (9)
  - Nephrolithiasis [Unknown]
  - Device occlusion [Recovered/Resolved]
  - Nephrostomy [Recovered/Resolved]
  - Septic shock [Unknown]
  - Blood urine present [Unknown]
  - Haemorrhage [Unknown]
  - Urosepsis [Unknown]
  - Urinary tract infection pseudomonal [Unknown]
  - Neurogenic bladder [Unknown]
